FAERS Safety Report 8339599-1 (Version None)
Quarter: 2012Q2

REPORT INFORMATION
  Report Type: 
  Country: None (occurrence: None)
  Receive Date: 20120507
  Receipt Date: 20120502
  Transmission Date: 20120825
  Serious: Yes (Other)
  Sender: FDA-Public Use
  Company Number: PHHY2012FR037989

PATIENT
  Age: 64 Year
  Sex: Female

DRUGS (3)
  1. FEMARA [Suspect]
     Dosage: 2.5 MG, EVERY 2 DAYS
     Route: 048
  2. FEMARA [Suspect]
     Dosage: 2.5 MG, DAILY
     Route: 048
  3. FEMARA [Suspect]
     Indication: BREAST CANCER
     Dosage: 2.5 MG, EVERY 2 DAYS
     Route: 048
     Dates: start: 20120301

REACTIONS (2)
  - TACHYARRHYTHMIA [None]
  - ATRIAL FIBRILLATION [None]
